FAERS Safety Report 9694905 (Version 3)
Quarter: 2014Q1

REPORT INFORMATION
  Report Type: Spontaneous
  Country: US (occurrence: US)
  Receive Date: 20131119
  Receipt Date: 20140203
  Transmission Date: 20141002
  Serious: Yes (Hospitalization, Other)
  Sender: FDA-Public Use
  Company Number: US-PFIZER INC-2013326606

PATIENT
  Age: 77 Year
  Sex: Male

DRUGS (6)
  1. SUTENT [Suspect]
     Indication: RENAL CANCER METASTATIC
     Dosage: 50 MG, CYCLIC (DAILY FOR 2 WKS, 1WK OFF)
     Route: 048
     Dates: start: 20130626, end: 201312
  2. SUTENT [Suspect]
     Dosage: 50 MG, TAKE 1 DAILY
     Route: 048
     Dates: start: 20130628
  3. ZOCOR [Concomitant]
     Dosage: UNK
  4. ZOLOFT [Concomitant]
     Dosage: UNK
  5. PREDNISONE [Concomitant]
     Dosage: UNK
  6. OXYGEN [Concomitant]
     Dosage: UNK

REACTIONS (3)
  - Thrombosis [Recovering/Resolving]
  - Oral pain [Unknown]
  - Blister [Unknown]
